FAERS Safety Report 10789617 (Version 1)
Quarter: 2015Q1

REPORT INFORMATION
  Report Type: Spontaneous
  Country: US (occurrence: None)
  Receive Date: 20150211
  Receipt Date: 20150211
  Transmission Date: 20150721
  Serious: Yes (Death)
  Sender: FDA-Public Use
  Company Number: None

PATIENT
  Age: 30 Year
  Sex: Female
  Weight: 90.72 kg

DRUGS (1)
  1. CORTISTEROID [Suspect]
     Active Substance: CORTICOSTEROID NOS

REACTIONS (6)
  - Nausea [None]
  - Condition aggravated [None]
  - Headache [None]
  - Back pain [None]
  - Visual impairment [None]
  - Night sweats [None]

NARRATIVE: CASE EVENT DATE: 20150116
